FAERS Safety Report 24685843 (Version 3)
Quarter: 2025Q3

REPORT INFORMATION
  Report Type: Report from Study
  Country: US (occurrence: US)
  Receive Date: 20241202
  Receipt Date: 20250829
  Transmission Date: 20251021
  Serious: Yes (Life-Threatening)
  Sender: BLUEBIRD BIO
  Company Number: US-BLUEBIRD BIO-US-BBB-24-00059

PATIENT
  Age: 9 Year
  Sex: Male
  Weight: 24.6 kg

DRUGS (112)
  1. ZYNTEGLO [Suspect]
     Active Substance: BETIBEGLOGENE AUTOTEMCEL
     Indication: Thalassaemia beta
     Route: 042
     Dates: start: 20240417, end: 20240417
  2. MOZOBIL [Concomitant]
     Active Substance: PLERIXAFOR
     Indication: Haematopoietic stem cell mobilisation
     Dosage: UNK, UNK
     Route: 042
  3. FILGRASTIM [Concomitant]
     Active Substance: FILGRASTIM
     Indication: Haematopoietic stem cell mobilisation
     Route: 065
     Dates: start: 20231201, end: 20231204
  4. BUSULFAN [Concomitant]
     Active Substance: BUSULFAN
     Indication: Bone marrow conditioning regimen
     Dosage: 3.2 MG/KG, QD
     Route: 042
     Dates: start: 20240411, end: 20240414
  5. DEXTROSE;POTASSIUM CHLORIDE;SODIUM CHLORIDE [Concomitant]
     Indication: Product used for unknown indication
     Route: 042
     Dates: start: 20240410, end: 20240417
  6. DEXTROSE;POTASSIUM CHLORIDE;SODIUM CHLORIDE [Concomitant]
     Route: 042
     Dates: start: 20240418, end: 20240422
  7. LEVOFLOXACIN [Concomitant]
     Active Substance: LEVOFLOXACIN
     Indication: Product used for unknown indication
     Dosage: 245 MILLIGRAM, QD
     Route: 048
     Dates: start: 20240415, end: 20240426
  8. MIDAZOLAM [Concomitant]
     Active Substance: MIDAZOLAM
     Indication: Product used for unknown indication
     Route: 048
     Dates: start: 20240410, end: 20240410
  9. MIDAZOLAM [Concomitant]
     Active Substance: MIDAZOLAM
     Route: 048
     Dates: start: 20240423, end: 20240423
  10. MIDAZOLAM [Concomitant]
     Active Substance: MIDAZOLAM
     Route: 048
     Dates: start: 20240503, end: 20240503
  11. OXYCODONE [Concomitant]
     Active Substance: OXYCODONE
     Indication: Product used for unknown indication
     Route: 048
     Dates: start: 20240410, end: 20240410
  12. OXYCODONE [Concomitant]
     Active Substance: OXYCODONE
     Dosage: 1.3 MILLIGRAM, EVERY 6 HOURS
     Route: 048
     Dates: start: 20240410, end: 20240428
  13. ACETAMINOPHEN [Concomitant]
     Active Substance: ACETAMINOPHEN
     Indication: Product used for unknown indication
     Dosage: 384 MILLIGRAM, Q4H, PRN
     Route: 048
     Dates: start: 20240410, end: 20240417
  14. ACETAMINOPHEN [Concomitant]
     Active Substance: ACETAMINOPHEN
     Route: 048
     Dates: start: 20240417, end: 20240417
  15. ACETAMINOPHEN [Concomitant]
     Active Substance: ACETAMINOPHEN
     Route: 042
     Dates: start: 20240508, end: 20240508
  16. ACETAMINOPHEN [Concomitant]
     Active Substance: ACETAMINOPHEN
     Route: 042
     Dates: start: 20240509, end: 20240509
  17. ONDANSETRON [Concomitant]
     Active Substance: ONDANSETRON
     Indication: Product used for unknown indication
     Dosage: 3.6 MILLIGRAM, Q8H
     Route: 042
     Dates: start: 20240411, end: 20240418
  18. APREPITANT [Concomitant]
     Active Substance: APREPITANT
     Indication: Product used for unknown indication
     Route: 048
     Dates: start: 20240411, end: 20240411
  19. APREPITANT [Concomitant]
     Active Substance: APREPITANT
     Route: 048
     Dates: start: 20240411, end: 20240412
  20. LEVETIRACETAM [Concomitant]
     Active Substance: LEVETIRACETAM
     Indication: Product used for unknown indication
     Dosage: 250 MILLIGRAM, Q12H
     Route: 048
     Dates: start: 20240410, end: 20240416
  21. COTRIMOXAZOLE [Concomitant]
     Active Substance: SULFAMETHOXAZOLE\TRIMETHOPRIM
     Indication: Product used for unknown indication
     Dosage: 60.8 MILLIGRAM, Q12H
     Route: 048
     Dates: start: 20240410, end: 20240415
  22. DIPHENHYDRAMINE [Concomitant]
     Active Substance: DIPHENHYDRAMINE
     Indication: Product used for unknown indication
     Route: 042
     Dates: start: 20240417, end: 20240417
  23. GLUTAMINE [LEVOGLUTAMIDE] [Concomitant]
     Indication: Product used for unknown indication
     Dosage: 2.72 GRAM, BID
     Route: 048
     Dates: start: 20240410, end: 20240506
  24. HUMAN RED BLOOD CELL [Concomitant]
     Active Substance: HUMAN RED BLOOD CELL
     Indication: Product used for unknown indication
     Route: 042
     Dates: start: 20240417, end: 20240417
  25. HUMAN RED BLOOD CELL [Concomitant]
     Active Substance: HUMAN RED BLOOD CELL
     Route: 042
     Dates: start: 20240428
  26. HUMAN RED BLOOD CELL [Concomitant]
     Active Substance: HUMAN RED BLOOD CELL
     Route: 042
     Dates: start: 20240429, end: 20240429
  27. HUMAN RED BLOOD CELL [Concomitant]
     Active Substance: HUMAN RED BLOOD CELL
     Route: 042
     Dates: start: 20240505
  28. HUMAN RED BLOOD CELL [Concomitant]
     Active Substance: HUMAN RED BLOOD CELL
     Route: 042
     Dates: start: 20240508, end: 20240508
  29. MIRALAX [Concomitant]
     Active Substance: POLYETHYLENE GLYCOL 3350
     Indication: Product used for unknown indication
     Route: 048
     Dates: start: 20240418, end: 20240419
  30. LORAZEPAM [Concomitant]
     Active Substance: LORAZEPAM
     Indication: Product used for unknown indication
     Route: 042
     Dates: start: 20240421, end: 20240421
  31. LORAZEPAM [Concomitant]
     Active Substance: LORAZEPAM
  32. FAT EMULSION NOS [Concomitant]
     Active Substance: EGG PHOSPHOLIPIDS\SAFFLOWER OIL\SOYBEAN OIL
     Indication: Product used for unknown indication
     Route: 042
     Dates: start: 20240422, end: 20240423
  33. FAT EMULSION NOS [Concomitant]
     Active Substance: EGG PHOSPHOLIPIDS\SAFFLOWER OIL\SOYBEAN OIL
     Route: 042
     Dates: start: 20240423, end: 20240424
  34. FAT EMULSION NOS [Concomitant]
     Active Substance: EGG PHOSPHOLIPIDS\SAFFLOWER OIL\SOYBEAN OIL
     Route: 042
     Dates: start: 20240424, end: 20240425
  35. FAT EMULSION NOS [Concomitant]
     Active Substance: EGG PHOSPHOLIPIDS\SAFFLOWER OIL\SOYBEAN OIL
     Route: 042
     Dates: start: 20240425, end: 20240426
  36. FAT EMULSION NOS [Concomitant]
     Active Substance: EGG PHOSPHOLIPIDS\SAFFLOWER OIL\SOYBEAN OIL
     Route: 042
     Dates: start: 20240426, end: 20240427
  37. FAT EMULSION NOS [Concomitant]
     Active Substance: EGG PHOSPHOLIPIDS\SAFFLOWER OIL\SOYBEAN OIL
     Route: 042
     Dates: start: 20240427, end: 20240428
  38. FAT EMULSION NOS [Concomitant]
     Active Substance: EGG PHOSPHOLIPIDS\SAFFLOWER OIL\SOYBEAN OIL
     Route: 042
     Dates: start: 20240428, end: 20240429
  39. FAT EMULSION NOS [Concomitant]
     Active Substance: EGG PHOSPHOLIPIDS\SAFFLOWER OIL\SOYBEAN OIL
     Route: 042
     Dates: start: 20240429, end: 20240430
  40. FAT EMULSION NOS [Concomitant]
     Active Substance: EGG PHOSPHOLIPIDS\SAFFLOWER OIL\SOYBEAN OIL
     Route: 042
     Dates: start: 20240430, end: 20240501
  41. FAT EMULSION NOS [Concomitant]
     Active Substance: EGG PHOSPHOLIPIDS\SAFFLOWER OIL\SOYBEAN OIL
     Route: 042
     Dates: start: 20240501, end: 20240502
  42. FAT EMULSION NOS [Concomitant]
     Active Substance: EGG PHOSPHOLIPIDS\SAFFLOWER OIL\SOYBEAN OIL
     Route: 042
     Dates: start: 20240502, end: 20240503
  43. FAT EMULSION NOS [Concomitant]
     Active Substance: EGG PHOSPHOLIPIDS\SAFFLOWER OIL\SOYBEAN OIL
     Route: 042
     Dates: start: 20240503, end: 20240504
  44. FAT EMULSION NOS [Concomitant]
     Active Substance: EGG PHOSPHOLIPIDS\SAFFLOWER OIL\SOYBEAN OIL
     Route: 042
     Dates: start: 20240504, end: 20240505
  45. FAT EMULSION NOS [Concomitant]
     Active Substance: EGG PHOSPHOLIPIDS\SAFFLOWER OIL\SOYBEAN OIL
     Route: 042
     Dates: start: 20240505, end: 20240506
  46. FAT EMULSION NOS [Concomitant]
     Active Substance: EGG PHOSPHOLIPIDS\SAFFLOWER OIL\SOYBEAN OIL
     Route: 042
     Dates: start: 20240506, end: 20240507
  47. FAT EMULSION NOS [Concomitant]
     Active Substance: EGG PHOSPHOLIPIDS\SAFFLOWER OIL\SOYBEAN OIL
     Route: 042
     Dates: start: 20240507, end: 20240508
  48. FAT EMULSION NOS [Concomitant]
     Active Substance: EGG PHOSPHOLIPIDS\SAFFLOWER OIL\SOYBEAN OIL
     Route: 042
     Dates: start: 20240508, end: 20240509
  49. AMINO ACIDS\CARBOHYDRATES\MINERALS\VITAMINS [Concomitant]
     Active Substance: AMINO ACIDS\CARBOHYDRATES\MINERALS\VITAMINS
     Indication: Product used for unknown indication
     Route: 042
     Dates: start: 20240422, end: 20240423
  50. AMINO ACIDS\CARBOHYDRATES\MINERALS\VITAMINS [Concomitant]
     Active Substance: AMINO ACIDS\CARBOHYDRATES\MINERALS\VITAMINS
     Route: 042
     Dates: start: 20240423, end: 20240424
  51. AMINO ACIDS\CARBOHYDRATES\MINERALS\VITAMINS [Concomitant]
     Active Substance: AMINO ACIDS\CARBOHYDRATES\MINERALS\VITAMINS
     Route: 042
     Dates: start: 20240424, end: 20240425
  52. AMINO ACIDS\CARBOHYDRATES\MINERALS\VITAMINS [Concomitant]
     Active Substance: AMINO ACIDS\CARBOHYDRATES\MINERALS\VITAMINS
     Route: 042
     Dates: start: 20240425, end: 20240426
  53. AMINO ACIDS\CARBOHYDRATES\MINERALS\VITAMINS [Concomitant]
     Active Substance: AMINO ACIDS\CARBOHYDRATES\MINERALS\VITAMINS
     Route: 042
     Dates: start: 20240426, end: 20240427
  54. AMINO ACIDS\CARBOHYDRATES\MINERALS\VITAMINS [Concomitant]
     Active Substance: AMINO ACIDS\CARBOHYDRATES\MINERALS\VITAMINS
     Route: 042
     Dates: start: 20240427, end: 20240428
  55. AMINO ACIDS\CARBOHYDRATES\MINERALS\VITAMINS [Concomitant]
     Active Substance: AMINO ACIDS\CARBOHYDRATES\MINERALS\VITAMINS
     Route: 042
     Dates: start: 20240428, end: 20240429
  56. AMINO ACIDS\CARBOHYDRATES\MINERALS\VITAMINS [Concomitant]
     Active Substance: AMINO ACIDS\CARBOHYDRATES\MINERALS\VITAMINS
     Route: 042
     Dates: start: 20240429, end: 20240430
  57. AMINO ACIDS\CARBOHYDRATES\MINERALS\VITAMINS [Concomitant]
     Active Substance: AMINO ACIDS\CARBOHYDRATES\MINERALS\VITAMINS
     Route: 042
     Dates: start: 20240430, end: 20240501
  58. AMINO ACIDS\CARBOHYDRATES\MINERALS\VITAMINS [Concomitant]
     Active Substance: AMINO ACIDS\CARBOHYDRATES\MINERALS\VITAMINS
     Route: 042
     Dates: start: 20240501, end: 20240502
  59. AMINO ACIDS\CARBOHYDRATES\MINERALS\VITAMINS [Concomitant]
     Active Substance: AMINO ACIDS\CARBOHYDRATES\MINERALS\VITAMINS
     Route: 042
     Dates: start: 20240502, end: 20240503
  60. AMINO ACIDS\CARBOHYDRATES\MINERALS\VITAMINS [Concomitant]
     Active Substance: AMINO ACIDS\CARBOHYDRATES\MINERALS\VITAMINS
     Route: 042
     Dates: start: 20240503, end: 20240504
  61. AMINO ACIDS\CARBOHYDRATES\MINERALS\VITAMINS [Concomitant]
     Active Substance: AMINO ACIDS\CARBOHYDRATES\MINERALS\VITAMINS
     Route: 042
     Dates: start: 20240504, end: 20240505
  62. AMINO ACIDS\CARBOHYDRATES\MINERALS\VITAMINS [Concomitant]
     Active Substance: AMINO ACIDS\CARBOHYDRATES\MINERALS\VITAMINS
     Route: 042
     Dates: start: 20240505, end: 20240506
  63. AMINO ACIDS\CARBOHYDRATES\MINERALS\VITAMINS [Concomitant]
     Active Substance: AMINO ACIDS\CARBOHYDRATES\MINERALS\VITAMINS
     Route: 042
     Dates: start: 20240506, end: 20240507
  64. AMINO ACIDS\CARBOHYDRATES\MINERALS\VITAMINS [Concomitant]
     Active Substance: AMINO ACIDS\CARBOHYDRATES\MINERALS\VITAMINS
     Route: 042
     Dates: start: 20240507, end: 20240508
  65. AMINO ACIDS\CARBOHYDRATES\MINERALS\VITAMINS [Concomitant]
     Active Substance: AMINO ACIDS\CARBOHYDRATES\MINERALS\VITAMINS
     Route: 042
     Dates: start: 20240508, end: 20240509
  66. VANCOMYCIN [Concomitant]
     Active Substance: VANCOMYCIN
     Indication: Product used for unknown indication
     Dosage: 255 MILLIGRAM, Q6H
     Route: 042
     Dates: start: 20240426, end: 20240427
  67. VANCOMYCIN [Concomitant]
     Active Substance: VANCOMYCIN
     Dosage: 255 MILLIGRAM, Q6H
     Route: 042
     Dates: start: 20240502, end: 20240503
  68. MORPHINE [Concomitant]
     Active Substance: MORPHINE
     Indication: Product used for unknown indication
     Dosage: 1.28 MILLIGRAM, Q4H
     Route: 042
     Dates: start: 20240426, end: 20240428
  69. MORPHINE [Concomitant]
     Active Substance: MORPHINE
     Dosage: 2 MILLIGRAM, Q4H
     Route: 042
     Dates: start: 20240428, end: 20240428
  70. MORPHINE [Concomitant]
     Active Substance: MORPHINE
     Dosage: 2.5 MILLIGRAM, Q4H
     Route: 042
     Dates: start: 20240428, end: 20240428
  71. MORPHINE [Concomitant]
     Active Substance: MORPHINE
     Dosage: 2.5 MILLIGRAM, Q4H
     Route: 042
     Dates: start: 20240428, end: 20240428
  72. MORPHINE [Concomitant]
     Active Substance: MORPHINE
     Dosage: 2.5 MILLIGRAM, Q4H
     Route: 042
     Dates: start: 20240430, end: 20240503
  73. MORPHINE [Concomitant]
     Active Substance: MORPHINE
     Dosage: 2.5 MILLIGRAM, Q4H
     Route: 042
     Dates: start: 20240505, end: 20240506
  74. PLATELETS [Concomitant]
     Active Substance: HUMAN PLATELET, ALLOGENIC
     Indication: Product used for unknown indication
     Route: 042
     Dates: start: 20240427
  75. PLATELETS [Concomitant]
     Active Substance: HUMAN PLATELET, ALLOGENIC
     Route: 042
     Dates: start: 20240428
  76. PLATELETS [Concomitant]
     Active Substance: HUMAN PLATELET, ALLOGENIC
     Route: 042
     Dates: start: 20240429
  77. PLATELETS [Concomitant]
     Active Substance: HUMAN PLATELET, ALLOGENIC
     Route: 042
     Dates: start: 20240430
  78. PLATELETS [Concomitant]
     Active Substance: HUMAN PLATELET, ALLOGENIC
     Route: 042
     Dates: start: 20240501, end: 20240501
  79. PLATELETS [Concomitant]
     Active Substance: HUMAN PLATELET, ALLOGENIC
     Route: 042
     Dates: start: 20240502
  80. PLATELETS [Concomitant]
     Active Substance: HUMAN PLATELET, ALLOGENIC
     Route: 042
     Dates: start: 20240503
  81. PLATELETS [Concomitant]
     Active Substance: HUMAN PLATELET, ALLOGENIC
     Route: 042
     Dates: start: 20240504
  82. PLATELETS [Concomitant]
     Active Substance: HUMAN PLATELET, ALLOGENIC
     Route: 042
     Dates: start: 20240505
  83. PLATELETS [Concomitant]
     Active Substance: HUMAN PLATELET, ALLOGENIC
     Route: 042
     Dates: start: 20240506
  84. PLATELETS [Concomitant]
     Active Substance: HUMAN PLATELET, ALLOGENIC
     Route: 042
     Dates: start: 20240507, end: 20240508
  85. PLATELETS [Concomitant]
     Active Substance: HUMAN PLATELET, ALLOGENIC
     Route: 042
     Dates: start: 20240508, end: 20240508
  86. PLATELETS [Concomitant]
     Active Substance: HUMAN PLATELET, ALLOGENIC
     Route: 042
     Dates: start: 20240509, end: 20240509
  87. PLATELETS [Concomitant]
     Active Substance: HUMAN PLATELET, ALLOGENIC
     Route: 042
     Dates: start: 20240510
  88. PLATELETS [Concomitant]
     Active Substance: HUMAN PLATELET, ALLOGENIC
     Route: 042
     Dates: start: 20240510
  89. FUROSEMIDE [Concomitant]
     Active Substance: FUROSEMIDE
     Indication: Product used for unknown indication
     Route: 042
     Dates: start: 20240428, end: 20240428
  90. FUROSEMIDE [Concomitant]
     Active Substance: FUROSEMIDE
     Route: 042
     Dates: start: 20240429, end: 20240429
  91. FUROSEMIDE [Concomitant]
     Active Substance: FUROSEMIDE
     Route: 042
     Dates: start: 20240430, end: 20240430
  92. FUROSEMIDE [Concomitant]
     Active Substance: FUROSEMIDE
     Route: 042
     Dates: start: 20240501, end: 20240501
  93. FUROSEMIDE [Concomitant]
     Active Substance: FUROSEMIDE
     Route: 042
     Dates: start: 20240502, end: 20240502
  94. FUROSEMIDE [Concomitant]
     Active Substance: FUROSEMIDE
     Route: 042
     Dates: start: 20240503, end: 20240503
  95. FUROSEMIDE [Concomitant]
     Active Substance: FUROSEMIDE
     Route: 042
     Dates: start: 20240504, end: 20240504
  96. FUROSEMIDE [Concomitant]
     Active Substance: FUROSEMIDE
     Route: 042
     Dates: start: 20240505, end: 20240505
  97. FUROSEMIDE [Concomitant]
     Active Substance: FUROSEMIDE
     Route: 042
     Dates: start: 20240506, end: 20240506
  98. FUROSEMIDE [Concomitant]
     Active Substance: FUROSEMIDE
     Route: 042
     Dates: start: 20240507, end: 20240507
  99. FUROSEMIDE [Concomitant]
     Active Substance: FUROSEMIDE
     Route: 042
     Dates: start: 20240508, end: 20240508
  100. FUROSEMIDE [Concomitant]
     Active Substance: FUROSEMIDE
     Route: 042
     Dates: start: 20240508, end: 20240508
  101. FUROSEMIDE [Concomitant]
     Active Substance: FUROSEMIDE
     Route: 042
     Dates: start: 20240509, end: 20240509
  102. MORPHINE SULFATE [Concomitant]
     Active Substance: MORPHINE SULFATE
     Indication: Product used for unknown indication
     Route: 042
     Dates: start: 20240428, end: 20240428
  103. MORPHINE SULFATE [Concomitant]
     Active Substance: MORPHINE SULFATE
     Route: 042
     Dates: start: 20240428, end: 20240429
  104. MORPHINE SULFATE [Concomitant]
     Active Substance: MORPHINE SULFATE
     Route: 042
     Dates: start: 20240429, end: 20240430
  105. MORPHINE SULFATE [Concomitant]
     Active Substance: MORPHINE SULFATE
     Route: 042
     Dates: start: 20240430, end: 20240503
  106. MORPHINE SULFATE [Concomitant]
     Active Substance: MORPHINE SULFATE
     Route: 042
     Dates: start: 20240503, end: 20240504
  107. MORPHINE SULFATE [Concomitant]
     Active Substance: MORPHINE SULFATE
     Route: 042
     Dates: start: 20240504, end: 20240505
  108. NALBUPHINE [Concomitant]
     Active Substance: NALBUPHINE
     Indication: Product used for unknown indication
     Dosage: 1.3 MILLIGRAM, Q6H
     Route: 042
     Dates: start: 20240429, end: 20240503
  109. NALBUPHINE [Concomitant]
     Active Substance: NALBUPHINE
     Dosage: 1.3 MILLIGRAM, Q8H
     Route: 042
     Dates: start: 20240503, end: 20240506
  110. CHLOROTHIAZIDE [Concomitant]
     Active Substance: CHLOROTHIAZIDE
     Indication: Product used for unknown indication
     Route: 042
     Dates: start: 20240508, end: 20240508
  111. URSODIOL [Concomitant]
     Active Substance: URSODIOL
     Indication: Venoocclusive disease
     Dosage: 300 MILLIGRAM, BID (EVERY 12 HOURS)
     Route: 048
     Dates: start: 20240410, end: 20240522
  112. URSODIOL [Concomitant]
     Active Substance: URSODIOL
     Indication: Prophylaxis

REACTIONS (3)
  - Venoocclusive liver disease [Recovered/Resolved]
  - Gastrointestinal haemorrhage [Recovered/Resolved]
  - Epistaxis [Recovered/Resolved]

NARRATIVE: CASE EVENT DATE: 20240510
